FAERS Safety Report 5163502-9 (Version None)
Quarter: 2006Q4

REPORT INFORMATION
  Report Type: 
  Country: None (occurrence: None)
  Receive Date: 20061124
  Receipt Date: 20061112
  Transmission Date: 20070319
  Serious: Yes (Other)
  Sender: FDA-Public Use
  Company Number: 2006139854

PATIENT
  Age: 61 Year
  Sex: Female
  Weight: 106.5953 kg

DRUGS (7)
  1. CHANTIX [Suspect]
     Indication: SMOKING CESSATION THERAPY
     Dosage: 2 MG (1 MG, 2 IN 1 D), ORAL
     Route: 048
     Dates: start: 20060101
  2. METFORMIN /PIOGLITAZONE                   (METFORMIN, PIOGLITAZONE) [Concomitant]
  3. DEMADEX [Concomitant]
  4. ALL OTHER THERAPEUTIC [Concomitant]
  5. COLCHICINE (COLCHICINE) [Concomitant]
  6. ELAVIL [Concomitant]
  7. MIRAPEX [Concomitant]

REACTIONS (7)
  - ALTERED VISUAL DEPTH PERCEPTION [None]
  - DEATH OF RELATIVE [None]
  - PHOTOPHOBIA [None]
  - PHOTOPSIA [None]
  - VISION BLURRED [None]
  - VISUAL ACUITY REDUCED [None]
  - VISUAL DISTURBANCE [None]
